FAERS Safety Report 7544013-X (Version None)
Quarter: 2011Q2

REPORT INFORMATION
  Report Type: 
  Country: None (occurrence: None)
  Receive Date: 20110613
  Receipt Date: 20040921
  Transmission Date: 20111010
  Serious: Yes (Hospitalization)
  Sender: FDA-Public Use
  Company Number: PHHO2004JP13461

PATIENT
  Sex: Female
  Weight: 42 kg

DRUGS (7)
  1. BASEN [Concomitant]
     Indication: DIABETES MELLITUS
     Dosage: .6 MG, UNK
     Route: 048
     Dates: start: 20030804, end: 20031030
  2. THEO-DUR [Concomitant]
     Indication: BRONCHITIS CHRONIC
     Dosage: 200 MG, UNK
     Route: 048
     Dates: start: 20030804, end: 20031030
  3. DIOVAN [Suspect]
     Indication: HYPERTENSION
     Dosage: 80 MG, QD
     Route: 048
     Dates: start: 20030821, end: 20031030
  4. GLYBURIDE [Concomitant]
     Indication: DIABETES MELLITUS
     Dosage: 5 MG, UNK
     Route: 048
     Dates: start: 20030804, end: 20031030
  5. DIGOSIN [Concomitant]
     Indication: CARDIAC FAILURE
     Dosage: .25 MG, UNK
     Route: 048
     Dates: start: 20030804, end: 20031030
  6. BAYLOTENSIN [Concomitant]
     Indication: HYPERTENSION
     Dosage: 10 MG, UNK
     Route: 048
     Dates: start: 20030804, end: 20031030
  7. MUCODYNE [Concomitant]
     Indication: BRONCHITIS CHRONIC
     Dosage: 500 MG, UNK
     Route: 048
     Dates: start: 20030804, end: 20030830

REACTIONS (5)
  - DYSPHAGIA [None]
  - VERTIGO [None]
  - CEREBELLAR ARTERY OCCLUSION [None]
  - CEREBELLAR INFARCTION [None]
  - NAUSEA [None]
